FAERS Safety Report 15626672 (Version 1)
Quarter: 2018Q4

REPORT INFORMATION
  Report Type: Spontaneous
  Country: GB (occurrence: GB)
  Receive Date: 20181116
  Receipt Date: 20181116
  Transmission Date: 20190205
  Serious: Yes (Disabling, Other)
  Sender: FDA-Public Use
  Company Number: GB-PFIZER INC-2018464791

PATIENT
  Age: 69 Year
  Sex: Male

DRUGS (8)
  1. ATORVASTATIN CALCIUM. [Suspect]
     Active Substance: ATORVASTATIN CALCIUM
     Indication: HYPERCHOLESTEROLAEMIA
     Dosage: 40 MG, 1X/DAY, (INCREASED FROM 20MG ABOUT 2 MONTHS AGO)
     Route: 048
     Dates: start: 20180702
  2. ACETYLSALICYLIC ACID [Concomitant]
     Active Substance: ASPIRIN
     Indication: ANTIPLATELET THERAPY
     Dosage: 75 MG, UNK
     Route: 048
     Dates: start: 20170101
  3. TAMSULOSIN [Concomitant]
     Active Substance: TAMSULOSIN
     Indication: POLLAKIURIA
     Dosage: 400 UG, UNK
     Route: 048
     Dates: start: 20170101
  4. SULFASALAZINE. [Concomitant]
     Active Substance: SULFASALAZINE
     Indication: COLITIS ULCERATIVE
     Dosage: 500 MG, UNK
     Route: 048
     Dates: start: 20170101
  5. SOLIFENACIN [Concomitant]
     Active Substance: SOLIFENACIN
     Indication: POLLAKIURIA
     Dosage: 10 MG, UNK
     Route: 050
     Dates: start: 20170101
  6. MIRABEGRON [Concomitant]
     Active Substance: MIRABEGRON
     Indication: POLLAKIURIA
     Dosage: 50 MG, UNK
     Route: 048
     Dates: start: 20170101
  7. AMLODIPINE [Concomitant]
     Active Substance: AMLODIPINE BESYLATE
     Dosage: UNK
     Route: 048
     Dates: start: 20170101
  8. LOSARTAN. [Concomitant]
     Active Substance: LOSARTAN
     Dosage: UNK
     Route: 048
     Dates: start: 20170101

REACTIONS (1)
  - Colitis ulcerative [Not Recovered/Not Resolved]

NARRATIVE: CASE EVENT DATE: 20180903
